FAERS Safety Report 10146593 (Version 2)
Quarter: 2014Q2

REPORT INFORMATION
  Report Type: Spontaneous
  Country: US (occurrence: US)
  Receive Date: 20140501
  Receipt Date: 20140501
  Transmission Date: 20141212
  Serious: No
  Sender: FDA-Public Use
  Company Number: US-BAXTER-2014BAX018821

PATIENT
  Age: 50 Year
  Sex: Female
  Weight: 59.09 kg

DRUGS (4)
  1. DIANEAL PD2 [Suspect]
     Indication: RENAL FAILURE CHRONIC
     Route: 033
     Dates: start: 201208
  2. DIANEAL PD2 [Suspect]
     Route: 033
     Dates: start: 201208
  3. DIANEAL PD2 [Suspect]
     Indication: RENAL FAILURE CHRONIC
     Route: 033
     Dates: start: 201208
  4. DIANEAL PD2 [Suspect]
     Route: 033
     Dates: start: 201208

REACTIONS (4)
  - Blood phosphorus increased [Unknown]
  - Catheter site pruritus [Recovered/Resolved]
  - Catheter site injury [Unknown]
  - Abdominal pain [Recovered/Resolved]
